FAERS Safety Report 23191316 (Version 1)
Quarter: 2023Q4

REPORT INFORMATION
  Report Type: Spontaneous
  Country: FR (occurrence: FR)
  Receive Date: 20231116
  Receipt Date: 20231116
  Transmission Date: 20240109
  Serious: Yes (Death, Other)
  Sender: FDA-Public Use
  Company Number: FR-AFSSAPS-TS2023000996

PATIENT
  Age: 72 Year
  Sex: Male

DRUGS (1)
  1. GEMCITABINE [Suspect]
     Active Substance: GEMCITABINE
     Indication: Bladder cancer
     Dosage: UNK
     Route: 040
     Dates: start: 20230705, end: 20230705

REACTIONS (4)
  - Posterior reversible encephalopathy syndrome [Fatal]
  - Acute kidney injury [Fatal]
  - Microangiopathy [Fatal]
  - Urosepsis [Fatal]

NARRATIVE: CASE EVENT DATE: 20230709
